FAERS Safety Report 17576269 (Version 1)
Quarter: 2020Q1

REPORT INFORMATION
  Report Type: Spontaneous
  Country: US (occurrence: US)
  Receive Date: 20200318
  Receipt Date: 20200318
  Transmission Date: 20200409
  Serious: Yes (Other)
  Sender: FDA-Public Use
  Company Number: None

PATIENT
  Age: 68 Year
  Sex: Female

DRUGS (12)
  1. PROPYLTHIOURACIL. [Concomitant]
     Active Substance: PROPYLTHIOURACIL
  2. FISH OIL [Suspect]
     Active Substance: FISH OIL
  3. DIGOXIN. [Concomitant]
     Active Substance: DIGOXIN
  4. SPIRA RESPIMAT [Concomitant]
  5. UPTRAVI [Concomitant]
     Active Substance: SELEXIPAG
  6. LACTOBACILLUS ACIDOPHILUS\LACTOBACILLUS BULGARICUS [Concomitant]
     Active Substance: LACTOBACILLUS ACIDOPHILUS\LACTOBACILLUS DELBRUECKII SUBSP. BULGARICUS
  7. WARFARIN [Concomitant]
     Active Substance: WARFARIN
  8. FISH OIL [Concomitant]
     Active Substance: FISH OIL
  9. SILDENAFIL. [Concomitant]
     Active Substance: SILDENAFIL
  10. SPIRONOLACTONE. [Concomitant]
     Active Substance: SPIRONOLACTONE
  11. METOPROLOL. [Concomitant]
     Active Substance: METOPROLOL
  12. TORSEMIDE. [Concomitant]
     Active Substance: TORSEMIDE

REACTIONS (1)
  - Pneumonia [None]

NARRATIVE: CASE EVENT DATE: 20200304
